FAERS Safety Report 9310417 (Version 1)
Quarter: 2013Q2

REPORT INFORMATION
  Report Type: Report from Study
  Country: BR (occurrence: BR)
  Receive Date: 20130527
  Receipt Date: 20130527
  Transmission Date: 20140414
  Serious: Yes (Hospitalization, Other)
  Sender: FDA-Public Use
  Company Number: PHHY2013BR052733

PATIENT
  Sex: Male

DRUGS (1)
  1. DIOVAN HCT [Suspect]
     Indication: HYPERTENSION
     Dosage: 1 DF(320MG VAL/25MG HCT), IN THE MORNING

REACTIONS (3)
  - Cardiovascular disorder [Recovering/Resolving]
  - Lung disorder [Recovering/Resolving]
  - Asthma [Recovering/Resolving]
